FAERS Safety Report 7825331-4 (Version None)
Quarter: 2011Q4

REPORT INFORMATION
  Report Type: 
  Country: None (occurrence: None)
  Receive Date: 20111019
  Receipt Date: 20111017
  Transmission Date: 20120403
  Serious: Yes (Hospitalization)
  Sender: FDA-Public Use
  Company Number: US-GLAXOSMITHKLINE-B0756518A

PATIENT
  Sex: Male

DRUGS (1)
  1. ROSIGLITAZONE MALEATE [Suspect]
     Indication: DIABETES MELLITUS
     Route: 048

REACTIONS (8)
  - PANCREATIC CALCIFICATION [None]
  - HYPERLIPIDAEMIA [None]
  - MACULAR DEGENERATION [None]
  - PANCREATITIS [None]
  - LIVER INJURY [None]
  - CONVULSION [None]
  - CEREBROVASCULAR ACCIDENT [None]
  - BLINDNESS [None]
